FAERS Safety Report 21568130 (Version 1)
Quarter: 2022Q4

REPORT INFORMATION
  Report Type: Spontaneous
  Country: JP (occurrence: JP)
  Receive Date: 20221108
  Receipt Date: 20221108
  Transmission Date: 20230112
  Serious: Yes (Hospitalization)
  Sender: FDA-Public Use
  Company Number: JP-TEVA-2022-JP-2824355

PATIENT
  Age: 55 Day
  Sex: Male

DRUGS (3)
  1. HYDROCORTISONE [Suspect]
     Active Substance: HYDROCORTISONE
     Indication: Prophylaxis
     Dosage: POSTNATAL DAY 0-DAY 9
     Route: 065
  2. AMPICILLIN [Concomitant]
     Active Substance: AMPICILLIN
     Indication: Intrauterine infection
     Dosage: POSTNATAL DAY 0-DAY 5
     Route: 065
  3. GENTAMICIN [Concomitant]
     Active Substance: GENTAMICIN
     Indication: Intrauterine infection
     Dosage: POSTNATAL DAY 0-DAY 5
     Route: 065

REACTIONS (1)
  - Beta haemolytic streptococcal infection [Unknown]
